FAERS Safety Report 5712261-7 (Version None)
Quarter: 2008Q2

REPORT INFORMATION
  Report Type: 
  Country: None (occurrence: None)
  Receive Date: 20080417
  Receipt Date: 20080409
  Transmission Date: 20081010
  Serious: Yes (Other)
  Sender: FDA-Public Use
  Company Number: 2008-02359

PATIENT
  Age: 68 Year
  Sex: Female

DRUGS (3)
  1. PROPAFENONE HCL [Suspect]
     Indication: SUPRAVENTRICULAR TACHYCARDIA
     Dosage: 1 TABLET, TID, ORAL
     Route: 048
     Dates: start: 20060401
  2. ADRIAMYCIN PFS [Suspect]
     Indication: BREAST CANCER
     Dosage: INTRAVENOUS
     Route: 042
     Dates: start: 20080326
  3. XANAX [Concomitant]

REACTIONS (7)
  - ANXIETY [None]
  - BREAST CANCER FEMALE [None]
  - DRUG INEFFECTIVE [None]
  - DRUG INTERACTION [None]
  - HEART RATE INCREASED [None]
  - PALPITATIONS [None]
  - STRESS [None]
